FAERS Safety Report 8795362 (Version 2)
Quarter: 2015Q2

REPORT INFORMATION
  Report Type: Report from Study
  Country: US (occurrence: US)
  Receive Date: 20120917
  Receipt Date: 20150409
  Transmission Date: 20150821
  Serious: Yes (Death)
  Sender: FDA-Public Use
  Company Number: US-ROCHE-1129243

PATIENT
  Sex: Female

DRUGS (3)
  1. GEMZAR [Concomitant]
     Active Substance: GEMCITABINE HYDROCHLORIDE
  2. NAVELBINE [Concomitant]
     Active Substance: VINORELBINE TARTRATE
  3. AVASTIN [Suspect]
     Active Substance: BEVACIZUMAB
     Indication: NASAL CAVITY CANCER
     Route: 042
     Dates: start: 20050503

REACTIONS (2)
  - Death [Fatal]
  - Off label use [Unknown]
